FAERS Safety Report 5099791-9 (Version None)
Quarter: 2006Q3

REPORT INFORMATION
  Report Type: 
  Country: None (occurrence: None)
  Receive Date: 20060908
  Receipt Date: 20060821
  Transmission Date: 20061208
  Serious: Yes (Hospitalization)
  Sender: FDA-Public Use
  Company Number: PHHO2006BE13717

PATIENT
  Age: 77 Year
  Sex: Male

DRUGS (3)
  1. ZOLEDRONATE [Suspect]
     Indication: PROSTATE CANCER
  2. CALCIUM GLUCONATE [Concomitant]
  3. VITAMIN D [Concomitant]

REACTIONS (2)
  - HIP ARTHROPLASTY [None]
  - OSTEONECROSIS [None]
